FAERS Safety Report 18846625 (Version 1)
Quarter: 2021Q1

REPORT INFORMATION
  Report Type: Report from Study
  Country: US (occurrence: US)
  Receive Date: 20210203
  Receipt Date: 20210203
  Transmission Date: 20210419
  Serious: No
  Sender: FDA-Public Use
  Company Number: US-EXELIXIS-CABO-20026648

PATIENT
  Age: 45 Year
  Sex: Female

DRUGS (2)
  1. CABOMETYX [Suspect]
     Active Substance: CABOZANTINIB S-MALATE
     Indication: RENAL CANCER
     Dosage: 60 MG, QD (AT 9 IN THE EVENING WITHOUT FOOD)
     Dates: start: 20191218, end: 20200115
  2. CABOMETYX [Suspect]
     Active Substance: CABOZANTINIB S-MALATE
     Dosage: 40 MG
     Dates: start: 20200124, end: 20200131

REACTIONS (16)
  - Ageusia [Unknown]
  - Rash pruritic [Recovered/Resolved]
  - Feeding disorder [Unknown]
  - Decreased appetite [Unknown]
  - Constipation [Unknown]
  - Pruritus [Unknown]
  - Fatigue [Recovering/Resolving]
  - Hair colour changes [Unknown]
  - Nausea [Unknown]
  - Weight decreased [Recovering/Resolving]
  - Blood pressure increased [Recovered/Resolved]
  - Pharyngitis [Unknown]
  - Stomatitis [Unknown]
  - Vomiting [Unknown]
  - Diarrhoea [Recovered/Resolved]
  - Dehydration [Recovering/Resolving]

NARRATIVE: CASE EVENT DATE: 20200109
